FAERS Safety Report 7324816-7 (Version None)
Quarter: 2011Q1

REPORT INFORMATION
  Report Type: 
  Country: None (occurrence: None)
  Receive Date: 20110301
  Receipt Date: 20110222
  Transmission Date: 20110831
  Serious: Yes (Other)
  Sender: FDA-Public Use
  Company Number: BR-ABBOTT-11P-020-0707647-00

PATIENT
  Sex: Female
  Weight: 105 kg

DRUGS (10)
  1. NEOZINE [Concomitant]
     Indication: PANIC DISORDER
  2. HUMIRA [Suspect]
     Indication: RHEUMATOID ARTHRITIS
     Route: 058
     Dates: start: 20090101
  3. ESQUIDON [Concomitant]
     Indication: PANIC DISORDER
  4. METFORMIN [Concomitant]
     Indication: DIABETES MELLITUS
     Route: 048
     Dates: start: 20020101
  5. OMEPRAZOLE [Concomitant]
     Indication: PROPHYLAXIS AGAINST GASTROINTESTINAL ULCER
     Route: 048
  6. SERTRALINE [Concomitant]
     Indication: DEPRESSION
     Route: 048
  7. SERTRALINE [Concomitant]
     Indication: PANIC DISORDER
  8. PRED FORT [Concomitant]
     Indication: UVEITIS
     Route: 047
  9. ESQUIDON [Concomitant]
     Indication: DEPRESSION
     Route: 048
     Dates: start: 20110122
  10. NEOZINE [Concomitant]
     Indication: DEPRESSION
     Dosage: 5 DROPS A DAY
     Dates: start: 20110122

REACTIONS (6)
  - UVEITIS [None]
  - DYSENTERY [None]
  - BLOOD TRIGLYCERIDES INCREASED [None]
  - BLINDNESS UNILATERAL [None]
  - SINUSITIS [None]
  - VISUAL IMPAIRMENT [None]
